FAERS Safety Report 5479243-4 (Version None)
Quarter: 2007Q4

REPORT INFORMATION
  Report Type: 
  Country: None (occurrence: None)
  Receive Date: 20071008
  Receipt Date: 20070928
  Transmission Date: 20080405
  Serious: Yes (Other)
  Sender: FDA-Public Use
  Company Number: PHBS2007JP16215

PATIENT

DRUGS (1)
  1. SANDOSTATIN [Suspect]
     Indication: PLEURAL EFFUSION
     Route: 058

REACTIONS (1)
  - SUBILEUS [None]
